FAERS Safety Report 8827755 (Version 1)
Quarter: 2012Q4

REPORT INFORMATION
  Report Type: 
  Country: US (occurrence: US)
  Receive Date: 20121008
  Receipt Date: 20121008
  Transmission Date: 20130627
  Serious: No
  Sender: FDA-Public Use
  Company Number: US-PFIZER INC-2012220123

PATIENT
  Age: 63 Year
  Sex: Male
  Weight: 118 kg

DRUGS (7)
  1. SUTENT [Suspect]
     Indication: RENAL CELL CARCINOMA
     Dosage: 50 mg, daily
     Dates: start: 20120901, end: 20120923
  2. SUTENT [Suspect]
     Indication: RENAL CELL CARCINOMA
  3. NORVASC [Suspect]
     Indication: HYPERTENSION
     Dosage: 5 mg, daily
     Dates: start: 201209, end: 201209
  4. NORVASC [Suspect]
     Dosage: 10 mg, daily
     Dates: start: 201209
  5. ATENOLOL [Suspect]
     Indication: HYPERTENSION
     Dosage: 25 mg, daily
     Dates: start: 201209, end: 201209
  6. ATENOLOL [Suspect]
     Dosage: 50 mg, daily
     Dates: start: 201209
  7. LISINOPRIL [Concomitant]
     Indication: HYPERTENSION
     Dosage: 2.5 mg, daily

REACTIONS (7)
  - Drug ineffective [Unknown]
  - Blood pressure increased [Unknown]
  - Platelet count decreased [Unknown]
  - Nausea [Recovered/Resolved]
  - Diarrhoea [Recovered/Resolved]
  - Dysgeusia [Not Recovered/Not Resolved]
  - Contusion [Unknown]
